FAERS Safety Report 9410032 (Version 1)
Quarter: 2013Q3

REPORT INFORMATION
  Report Type: Report from Study
  Country: US (occurrence: US)
  Receive Date: 20130719
  Receipt Date: 20130719
  Transmission Date: 20140515
  Serious: Yes (Hospitalization)
  Sender: FDA-Public Use
  Company Number: US-ABBOTT-13P-163-1118808-00

PATIENT
  Age: 51 Year
  Sex: Female

DRUGS (4)
  1. HUMIRA [Suspect]
     Indication: CROHN^S DISEASE
     Route: 058
     Dates: start: 2012, end: 20130213
  2. UNKNOWN THYROID MEDICATON [Concomitant]
     Indication: HYPOTHYROIDISM
  3. NEURONTIN [Concomitant]
     Indication: PAIN
  4. TRAMADOL [Concomitant]
     Indication: PAIN

REACTIONS (5)
  - Soft tissue injury [Recovered/Resolved]
  - Scratch [Recovered/Resolved]
  - Neuralgia [Not Recovered/Not Resolved]
  - Arthropod bite [Recovered/Resolved]
  - Pruritus [Recovered/Resolved]
